FAERS Safety Report 10094655 (Version 1)
Quarter: 2014Q2

REPORT INFORMATION
  Report Type: Spontaneous
  Country: IE (occurrence: IE)
  Receive Date: 20140422
  Receipt Date: 20140422
  Transmission Date: 20141212
  Serious: Yes (Other)
  Sender: FDA-Public Use
  Company Number: IE-UCBSA-118638

PATIENT
  Age: 24 Year
  Sex: Female

DRUGS (3)
  1. LACOSAMIDE [Suspect]
     Indication: CONVULSION
  2. LEVETIRACETAM [Suspect]
     Indication: CONVULSION
  3. LEVETIRACETAM [Suspect]
     Indication: CONVULSION

REACTIONS (2)
  - Convulsion [Recovered/Resolved]
  - Drug ineffective [Recovered/Resolved]
